FAERS Safety Report 4322758-2 (Version None)
Quarter: 2004Q1

REPORT INFORMATION
  Report Type: 
  Country: None (occurrence: None)
  Receive Date: 20040324
  Receipt Date: 20040322
  Transmission Date: 20041129
  Serious: Yes (Hospitalization)
  Sender: FDA-Public Use
  Company Number: FR-GLAXOSMITHKLINE-B0327411A

PATIENT
  Age: 50 Year
  Sex: Female

DRUGS (1)
  1. AUGMENTIN [Suspect]
     Route: 048
     Dates: start: 20020101, end: 20020101

REACTIONS (4)
  - ANGIONEUROTIC OEDEMA [None]
  - DYSPNOEA [None]
  - TYPE I HYPERSENSITIVITY [None]
  - URTICARIA [None]
